FAERS Safety Report 26126404 (Version 1)
Quarter: 2025Q4

REPORT INFORMATION
  Report Type: Spontaneous
  Country: GB (occurrence: GB)
  Receive Date: 20251205
  Receipt Date: 20251205
  Transmission Date: 20260118
  Serious: Yes (Other)
  Sender: PURDUE
  Company Number: GB-NAPPMUNDI-GBR-2025-0126865

PATIENT
  Sex: Female

DRUGS (2)
  1. MORPHINE SULFATE [Suspect]
     Active Substance: MORPHINE SULFATE
     Indication: Chronic obstructive pulmonary disease
     Dosage: 5 MILLIGRAM, BID
     Route: 065
     Dates: start: 202503, end: 2025
  2. CITALOPRAM [Concomitant]
     Active Substance: CITALOPRAM
     Indication: Product used for unknown indication
     Dosage: UNK
     Route: 065

REACTIONS (6)
  - Respiratory depression [Unknown]
  - Dementia [Unknown]
  - Contraindicated product administered [Unknown]
  - Alopecia [Unknown]
  - Anxiety [Unknown]
  - Brain fog [Unknown]
